FAERS Safety Report 4812023-9 (Version None)
Quarter: 2005Q4

REPORT INFORMATION
  Report Type: 
  Country: None (occurrence: None)
  Receive Date: 20051028
  Receipt Date: 20041025
  Transmission Date: 20060501
  Serious: No
  Sender: FDA-Public Use
  Company Number: US-GLAXOSMITHKLINE-A0531206A

PATIENT
  Age: 80 Year
  Sex: Female

DRUGS (6)
  1. ADVAIR DISKUS 100/50 [Suspect]
     Indication: ASTHMA
     Dosage: 1PUFF TWICE PER DAY
     Route: 055
     Dates: start: 20010101
  2. PROTONIX [Concomitant]
  3. HYDROCHIDE [Concomitant]
     Route: 065
  4. LEVOXYL [Concomitant]
  5. LISINOPRIL [Concomitant]
  6. LIPITOR [Concomitant]

REACTIONS (2)
  - COUGH [None]
  - PHARMACEUTICAL PRODUCT COMPLAINT [None]
